FAERS Safety Report 8807544 (Version 1)
Quarter: 2012Q4

REPORT INFORMATION
  Report Type: 
  Country: US (occurrence: US)
  Receive Date: 20120925
  Receipt Date: 20120925
  Transmission Date: 20130627
  Serious: Yes (Other)
  Sender: FDA-Public Use
  Company Number: US-PFIZER INC-2012235068

PATIENT
  Age: 46 Year
  Sex: Female
  Weight: 70.3 kg

DRUGS (1)
  1. TOVIAZ [Suspect]
     Indication: HYPERTONIC BLADDER
     Dosage: 8 mg, daily
     Dates: start: 2009

REACTIONS (2)
  - Joint injury [Unknown]
  - Arthritis [Not Recovered/Not Resolved]
